FAERS Safety Report 5524669-3 (Version None)
Quarter: 2007Q4

REPORT INFORMATION
  Report Type: 
  Country: None (occurrence: None)
  Receive Date: 20071123
  Receipt Date: 20071108
  Transmission Date: 20080405
  Serious: Yes (Death)
  Sender: FDA-Public Use
  Company Number: GB-PURDUE-GBR_2007_0003437

PATIENT
  Age: 55 Year
  Sex: Female
  Weight: 38 kg

DRUGS (1)
  1. MORPHINE SULFATE [Suspect]
     Indication: EMPHYSEMA
     Route: 065

REACTIONS (1)
  - DEATH [None]
